FAERS Safety Report 10656869 (Version 1)
Quarter: 2014Q4

REPORT INFORMATION
  Report Type: Spontaneous
  Country: DE (occurrence: DE)
  Receive Date: 20141217
  Receipt Date: 20141217
  Transmission Date: 20150529
  Serious: Yes (Life-Threatening, Hospitalization, Disabling, Other)
  Sender: FDA-Public Use
  Company Number: DE-AMGEN-DEUSP2014097027

PATIENT
  Age: 63 Year
  Sex: Female
  Weight: 83 kg

DRUGS (7)
  1. ASPIRIN. [Concomitant]
     Active Substance: ASPIRIN
     Dosage: 100 DF, UNK
  2. TIMOLOL [Concomitant]
     Active Substance: TIMOLOL
     Dosage: 71 (EYE DROPS)
  3. ENBREL [Suspect]
     Active Substance: ETANERCEPT
     Indication: RHEUMATOID ARTHRITIS
     Dosage: 50 MG, UNK
     Route: 058
     Dates: start: 201303, end: 20140312
  4. METOPROLOL [Concomitant]
     Active Substance: METOPROLOL
     Dosage: 23.75 MG, UNK
     Route: 048
  5. ENALAPRIL [Concomitant]
     Active Substance: ENALAPRIL
     Dosage: 10 MG, UNK
     Route: 048
  6. JODTHYROX [Concomitant]
     Active Substance: LEVOTHYROXINE SODIUM\POTASSIUM IODIDE
     Dosage: 50 MICROGRAM, UNK
     Route: 048
  7. SIMVASTATIN. [Concomitant]
     Active Substance: SIMVASTATIN
     Dosage: 40 MG, UNK
     Route: 048

REACTIONS (4)
  - Glomerulonephritis proliferative [Unknown]
  - Blood creatinine increased [Unknown]
  - Lupus-like syndrome [Unknown]
  - Glomerulonephritis [Unknown]

NARRATIVE: CASE EVENT DATE: 201312
